FAERS Safety Report 9459766 (Version 1)
Quarter: 2013Q3

REPORT INFORMATION
  Report Type: Spontaneous
  Country: US (occurrence: US)
  Receive Date: 20130815
  Receipt Date: 20130815
  Transmission Date: 20140515
  Serious: Yes (Other)
  Sender: FDA-Public Use
  Company Number: US-ASTELLAS-2013US008497

PATIENT
  Sex: Male

DRUGS (2)
  1. VESICARE [Suspect]
     Indication: MICTURITION URGENCY
     Dosage: UNK
     Route: 065
  2. VESICARE [Suspect]
     Indication: INCONTINENCE

REACTIONS (3)
  - Drug ineffective [Unknown]
  - Cardiac operation [Unknown]
  - Urinary incontinence [Unknown]
